FAERS Safety Report 7584744-9 (Version None)
Quarter: 2011Q2

REPORT INFORMATION
  Report Type: 
  Country: None (occurrence: None)
  Receive Date: 20110630
  Receipt Date: 20110621
  Transmission Date: 20111010
  Serious: Yes (Other)
  Sender: FDA-Public Use
  Company Number: PHHY2011DE54973

PATIENT
  Age: 76 Year
  Sex: Female

DRUGS (3)
  1. CORTISON CHEMICETINA [Concomitant]
  2. AREDIA [Suspect]
     Dosage: UNK
     Route: 042
     Dates: start: 19990201, end: 20050101
  3. CHEMOTHERAPEUTICS NOS [Concomitant]

REACTIONS (1)
  - OSTEONECROSIS OF JAW [None]
